FAERS Safety Report 12356939 (Version 4)
Quarter: 2016Q4

REPORT INFORMATION
  Report Type: Spontaneous
  Country: US (occurrence: US)
  Receive Date: 20160511
  Receipt Date: 20161215
  Transmission Date: 20170207
  Serious: Yes (Other)
  Sender: FDA-Public Use
  Company Number: US-PFIZER INC-2016248083

PATIENT
  Age: 51 Year
  Sex: Female
  Weight: 87.8 kg

DRUGS (4)
  1. IBRANCE [Suspect]
     Active Substance: PALBOCICLIB
     Dosage: 100 MG, CYCLIC (D1-D21 Q28D)
     Route: 048
     Dates: start: 20160212
  2. IBRANCE [Suspect]
     Active Substance: PALBOCICLIB
     Dosage: 100 MG, CYCLIC (ON DAYS 1-21 EVERY 28 DAYS)
     Route: 048
     Dates: start: 20160212
  3. IBRANCE [Suspect]
     Active Substance: PALBOCICLIB
     Dosage: 75 MG, UNK
  4. IBRANCE [Suspect]
     Active Substance: PALBOCICLIB
     Indication: BREAST CANCER METASTATIC
     Dosage: 100 MG, CYCLIC (ON DAYS 1-21 EVERY 28 DAYS)
     Route: 048
     Dates: start: 20160212

REACTIONS (6)
  - Neutropenia [Unknown]
  - Blood count abnormal [Unknown]
  - Thrombosis [Unknown]
  - Red blood cell count decreased [Unknown]
  - Fatigue [Unknown]
  - Splenomegaly [Unknown]

NARRATIVE: CASE EVENT DATE: 201610
